FAERS Safety Report 5759798-2 (Version None)
Quarter: 2008Q2

REPORT INFORMATION
  Report Type: 
  Country: None (occurrence: None)
  Receive Date: 20080605
  Receipt Date: 20080602
  Transmission Date: 20081010
  Serious: Yes (Other)
  Sender: FDA-Public Use
  Company Number: D0057264A

PATIENT
  Age: 36 Year
  Sex: Female
  Weight: 73 kg

DRUGS (1)
  1. ESKAZOLE [Suspect]
     Indication: INFECTION PARASITIC
     Dosage: 400MG PER DAY
     Route: 048
     Dates: start: 20080428, end: 20080430

REACTIONS (3)
  - ABORTION MISSED [None]
  - DRUG EXPOSURE DURING PREGNANCY [None]
  - EXCORIATION [None]
